FAERS Safety Report 4366141-2 (Version None)
Quarter: 2004Q2

REPORT INFORMATION
  Report Type: 
  Country: None (occurrence: None)
  Receive Date: 20040526
  Receipt Date: 20040526
  Transmission Date: 20050107
  Serious: Yes (Other)
  Sender: FDA-Public Use
  Company Number: None

PATIENT
  Age: 56 Month
  Sex: Male
  Weight: 24 kg

DRUGS (1)
  1. TOPAMAX [Suspect]

REACTIONS (10)
  - ABNORMAL DREAMS [None]
  - ACQUIRED EPILEPTIC APHASIA [None]
  - AUTISM [None]
  - DISORIENTATION [None]
  - DISTURBANCE IN ATTENTION [None]
  - EXPRESSIVE LANGUAGE DISORDER [None]
  - FEAR [None]
  - PHONOLOGICAL DISORDER [None]
  - PSYCHOMOTOR HYPERACTIVITY [None]
  - SPEECH DISORDER [None]
